FAERS Safety Report 7550275-5 (Version None)
Quarter: 2011Q2

REPORT INFORMATION
  Report Type: 
  Country: None (occurrence: None)
  Receive Date: 20110615
  Receipt Date: 20090924
  Transmission Date: 20111010
  Serious: Yes (Hospitalization, Other)
  Sender: FDA-Public Use
  Company Number: US-BAYER-200933832NA

PATIENT
  Age: 57 Year
  Sex: Male
  Weight: 141.95 kg

DRUGS (9)
  1. TRASYLOL [Suspect]
     Indication: CORONARY ARTERY BYPASS
     Dosage: 200 ML LOADING DOSE,TOTAL OF 600CC
     Route: 042
     Dates: start: 20051111, end: 20051111
  2. LIPITOR [Concomitant]
     Route: 048
  3. DIOVAN [Concomitant]
     Dosage: 160/12.5
     Route: 048
  4. NEXIUM [Concomitant]
     Route: 048
  5. MANNITOL [Concomitant]
     Dosage: 25 G, UNK
     Route: 042
     Dates: start: 20051111
  6. VANCOMYCIN [Concomitant]
  7. LEVOPHED [Concomitant]
     Dosage: 10 MG, UNK
     Route: 042
     Dates: start: 20051111
  8. TRASYLOL [Suspect]
     Dosage: 1 ML TEST DOSE
     Route: 042
     Dates: start: 20051111, end: 20051111
  9. DOBUTAMINE HYDROCHLORIDE [Concomitant]
     Dosage: 95 MG/KG, UNK
     Route: 042
     Dates: start: 20051111

REACTIONS (12)
  - FEAR [None]
  - MULTI-ORGAN FAILURE [None]
  - RENAL FAILURE [None]
  - ANXIETY [None]
  - EMOTIONAL DISTRESS [None]
  - RENAL IMPAIRMENT [None]
  - PAIN [None]
  - STRESS [None]
  - UNEVALUABLE EVENT [None]
  - INJURY [None]
  - ANHEDONIA [None]
  - RENAL INJURY [None]
